FAERS Safety Report 8272996-1 (Version None)
Quarter: 2012Q2

REPORT INFORMATION
  Report Type: 
  Country: None (occurrence: None)
  Receive Date: 20120411
  Receipt Date: 20120403
  Transmission Date: 20120825
  Serious: Yes (Hospitalization, Other)
  Sender: FDA-Public Use
  Company Number: US-BAYER-201038431NA

PATIENT
  Age: 19 Year
  Sex: Female

DRUGS (5)
  1. AXERT [Concomitant]
     Dosage: UNK
  2. VERAPAMIL [Concomitant]
     Dosage: UNK
  3. YASMIN [Suspect]
     Indication: PRODUCT USED FOR UNKNOWN INDICATION
     Route: 048
     Dates: start: 20040101
  4. IMITREX [Concomitant]
     Dosage: UNK
  5. LORTAB [Concomitant]
     Dosage: UNK

REACTIONS (4)
  - PAIN [None]
  - JUGULAR VEIN THROMBOSIS [None]
  - CEREBROVASCULAR ACCIDENT [None]
  - INTRACRANIAL VENOUS SINUS THROMBOSIS [None]
